FAERS Safety Report 25361783 (Version 2)
Quarter: 2025Q2

REPORT INFORMATION
  Report Type: Spontaneous
  Country: AT (occurrence: AT)
  Receive Date: 20250527
  Receipt Date: 20250613
  Transmission Date: 20250717
  Serious: No
  Sender: EXELIXIS
  Company Number: AT-IPSEN Group, Research and Development-2025-12055

PATIENT
  Age: 67 Year
  Sex: Male
  Weight: 51 kg

DRUGS (2)
  1. CABOMETYX [Suspect]
     Active Substance: CABOZANTINIB S-MALATE
     Indication: Product used for unknown indication
     Route: 065
     Dates: start: 20231101
  2. Mistral [Concomitant]

REACTIONS (7)
  - Vitreous floaters [Recovered/Resolved]
  - Vitreous floaters [Unknown]
  - Chromatopsia [Not Recovered/Not Resolved]
  - Sinusitis [Unknown]
  - Diarrhoea [Recovered/Resolved]
  - Weight decreased [Recovered/Resolved]
  - Palmar-plantar erythrodysaesthesia syndrome [Unknown]

NARRATIVE: CASE EVENT DATE: 20231101
